FAERS Safety Report 4943746-9 (Version None)
Quarter: 2006Q1

REPORT INFORMATION
  Report Type: 
  Country: None (occurrence: None)
  Receive Date: 20060310
  Receipt Date: 20060301
  Transmission Date: 20060701
  Serious: Yes (Other)
  Sender: FDA-Public Use
  Company Number: 2005051359

PATIENT
  Age: 58 Year
  Sex: Male

DRUGS (15)
  1. NORVASC [Suspect]
     Indication: HYPERTENSION
     Dosage: SEE IMAGE
     Route: 048
     Dates: start: 20041125, end: 20041215
  2. NORVASC [Suspect]
     Indication: HYPERTENSION
     Dosage: SEE IMAGE
     Route: 048
     Dates: start: 20041216, end: 20060112
  3. BLINDED THERAPY (BLINDED THERAPY) [Suspect]
     Indication: DIABETES MELLITUS NON-INSULIN-DEPENDENT
     Dosage: SEE IMAGE
     Route: 048
     Dates: start: 20040701, end: 20040804
  4. BLINDED THERAPY (BLINDED THERAPY) [Suspect]
     Indication: DIABETIC NEPHROPATHY
     Dosage: SEE IMAGE
     Route: 048
     Dates: start: 20040701, end: 20040804
  5. BLINDED THERAPY (BLINDED THERAPY) [Suspect]
     Indication: DIABETES MELLITUS NON-INSULIN-DEPENDENT
     Dosage: SEE IMAGE
     Route: 048
     Dates: start: 20040805, end: 20040901
  6. BLINDED THERAPY (BLINDED THERAPY) [Suspect]
     Indication: DIABETIC NEPHROPATHY
     Dosage: SEE IMAGE
     Route: 048
     Dates: start: 20040805, end: 20040901
  7. BLINDED THERAPY (BLINDED THERAPY) [Suspect]
     Indication: DIABETES MELLITUS NON-INSULIN-DEPENDENT
     Dosage: SEE IMAGE
     Route: 048
     Dates: start: 20040902, end: 20060112
  8. BLINDED THERAPY (BLINDED THERAPY) [Suspect]
     Indication: DIABETIC NEPHROPATHY
     Dosage: SEE IMAGE
     Route: 048
     Dates: start: 20040902, end: 20060112
  9. INSULIN INJECTION, BIPHASIC [Concomitant]
  10. LASIX [Concomitant]
  11. DIPYRIDAMOLE [Concomitant]
  12. ALLOPURINOL [Concomitant]
  13. PANCREAS EXTRACT [Concomitant]
  14. DICLOFENAC SODIUM [Concomitant]
  15. MECOBALAMIN [Concomitant]

REACTIONS (2)
  - CEREBRAL INFARCTION [None]
  - ORTHOSTATIC HYPOTENSION [None]
